FAERS Safety Report 7529140-5 (Version None)
Quarter: 2011Q2

REPORT INFORMATION
  Report Type: 
  Country: None (occurrence: None)
  Receive Date: 20110607
  Receipt Date: 20050408
  Transmission Date: 20111010
  Serious: Yes (Death)
  Sender: FDA-Public Use
  Company Number: PHHO2005CN05496

PATIENT
  Sex: Male

DRUGS (1)
  1. GLEEVEC [Suspect]
     Indication: BLAST CRISIS IN MYELOGENOUS LEUKAEMIA
     Dosage: 600 MG, QD
     Route: 048
     Dates: start: 20040918, end: 20050325

REACTIONS (3)
  - ACUTE LYMPHOCYTIC LEUKAEMIA [None]
  - PANCYTOPENIA [None]
  - NEOPLASM MALIGNANT [None]
